FAERS Safety Report 4967807-3 (Version None)
Quarter: 2006Q2

REPORT INFORMATION
  Report Type: 
  Country: None (occurrence: None)
  Receive Date: 20060410
  Receipt Date: 20051123
  Transmission Date: 20061013
  Serious: Yes (Hospitalization)
  Sender: FDA-Public Use
  Company Number: US-MERCK-0511USA03996

PATIENT
  Age: 41 Year
  Sex: Female
  Weight: 83 kg

DRUGS (19)
  1. VIOXX [Suspect]
     Indication: ARTHRITIS
     Route: 048
     Dates: start: 19990831, end: 20041001
  2. VIOXX [Suspect]
     Indication: COSTOCHONDRITIS
     Route: 048
     Dates: start: 19990831, end: 20041001
  3. LORCET-HD [Concomitant]
     Route: 065
     Dates: start: 20021007, end: 20050101
  4. HYDROCHLOROTHIAZIDE [Concomitant]
     Indication: HYPERTENSION
     Route: 065
     Dates: start: 19990924
  5. AMITRIPTYLINE HYDROCHLORIDE [Concomitant]
     Indication: DEPRESSION
     Route: 048
  6. AMITRIPTYLINE HYDROCHLORIDE [Concomitant]
     Route: 065
  7. FLEXERIL [Concomitant]
     Route: 048
     Dates: start: 19990831
  8. HYDROCODONE BITARTRATE [Concomitant]
     Route: 065
     Dates: start: 19980219
  9. LORTAB [Concomitant]
     Route: 065
     Dates: start: 19990924
  10. NEURONTIN [Concomitant]
     Route: 065
     Dates: start: 19990924
  11. PREDNISONE [Concomitant]
     Route: 065
     Dates: start: 20020812
  12. PREMARIN [Concomitant]
     Route: 065
     Dates: start: 19980219, end: 20040101
  13. PRILOSEC [Concomitant]
     Route: 065
     Dates: start: 20000224
  14. TYLENOL W/ CODEINE [Concomitant]
     Route: 065
     Dates: start: 20000623
  15. ULTRAM [Concomitant]
     Route: 065
     Dates: start: 19980309
  16. VIBRAMYCIN (DOXYCYCLINE CALCIUM) [Concomitant]
     Route: 065
     Dates: start: 19980219
  17. WELLBUTRIN [Concomitant]
     Route: 065
     Dates: start: 20020812
  18. ZYDONE [Concomitant]
     Route: 065
     Dates: start: 19990831
  19. PRAVACHOL [Concomitant]
     Indication: BLOOD CHOLESTEROL INCREASED
     Route: 065
     Dates: start: 20030101

REACTIONS (20)
  - ACUTE CORONARY SYNDROME [None]
  - ACUTE MYOCARDIAL INFARCTION [None]
  - ANGINA UNSTABLE [None]
  - BACK PAIN [None]
  - CORONARY ARTERY DISEASE [None]
  - CORONARY ARTERY STENOSIS [None]
  - COSTOCHONDRITIS [None]
  - ELECTROCARDIOGRAM ST SEGMENT DEPRESSION [None]
  - EPISTAXIS [None]
  - HEADACHE [None]
  - MUSCULOSKELETAL DISORDER [None]
  - MYOCARDIAL INFARCTION [None]
  - NAUSEA [None]
  - PAIN IN EXTREMITY [None]
  - PAIN IN JAW [None]
  - PULMONARY EMBOLISM [None]
  - RASH [None]
  - SHOULDER PAIN [None]
  - SKIN LESION [None]
  - UPPER RESPIRATORY TRACT INFECTION [None]
